FAERS Safety Report 25347675 (Version 1)
Quarter: 2025Q2

REPORT INFORMATION
  Report Type: Other
  Country: UA (occurrence: UA)
  Receive Date: 20250522
  Receipt Date: 20250522
  Transmission Date: 20250717
  Serious: Yes (Death, Life-Threatening, Other)
  Sender: B BRAUN
  Company Number: UA-B.Braun Medical Inc.-2177275

PATIENT
  Age: 4 Year
  Sex: Female

DRUGS (2)
  1. CEFTRIAXONE SODIUM [Suspect]
     Active Substance: CEFTRIAXONE SODIUM
     Indication: Bacterial infection
  2. LIDOCAINE [Suspect]
     Active Substance: LIDOCAINE

REACTIONS (1)
  - Kounis syndrome [Fatal]
